FAERS Safety Report 5701173-0 (Version None)
Quarter: 2008Q2

REPORT INFORMATION
  Report Type: 
  Country: None (occurrence: None)
  Receive Date: 20080410
  Receipt Date: 20080402
  Transmission Date: 20081010
  Serious: Yes (Other)
  Sender: FDA-Public Use
  Company Number: JP-PFIZER INC-2008016407

PATIENT
  Sex: Female
  Weight: 63 kg

DRUGS (10)
  1. ZYVOX [Suspect]
     Indication: WOUND INFECTION STAPHYLOCOCCAL
     Route: 042
     Dates: start: 20070706, end: 20070725
  2. ZYVOX [Suspect]
     Indication: WOUND INFECTION STAPHYLOCOCCAL
     Route: 048
     Dates: start: 20070709, end: 20070806
  3. TEICOPLANIN [Concomitant]
     Route: 042
     Dates: start: 20070620, end: 20070705
  4. THEOPHYLLINE [Concomitant]
     Route: 048
  5. VALSARTAN [Concomitant]
     Route: 048
  6. EVISTA [Concomitant]
     Route: 048
  7. PREDNISOLONE [Concomitant]
     Route: 048
  8. PARIET [Concomitant]
     Route: 048
  9. ENALAPRIL MALEATE [Concomitant]
     Route: 048
  10. VANCOMYCIN [Concomitant]
     Dates: start: 20070101, end: 20070101

REACTIONS (5)
  - ANOREXIA [None]
  - HAEMOGLOBIN DECREASED [None]
  - NAUSEA [None]
  - PLATELET COUNT DECREASED [None]
  - VOMITING [None]
